FAERS Safety Report 13964370 (Version 1)
Quarter: 2017Q3

REPORT INFORMATION
  Report Type: Spontaneous
  Country: US (occurrence: US)
  Receive Date: 20170913
  Receipt Date: 20170913
  Transmission Date: 20171128
  Serious: No
  Sender: FDA-Public Use
  Company Number: US-BEH-2017083548

PATIENT
  Age: 21 Year
  Sex: Female
  Weight: 61.22 kg

DRUGS (6)
  1. BERINERT [Suspect]
     Active Substance: HUMAN C1-ESTERASE INHIBITOR
     Indication: HEREDITARY ANGIOEDEMA
     Dosage: 1000 IU, AS DIRECT
     Route: 042
     Dates: start: 20170905
  2. ZYRTEC [Concomitant]
     Active Substance: CETIRIZINE HYDROCHLORIDE
     Route: 065
  3. PROMETRIUM [Concomitant]
     Active Substance: PROGESTERONE
     Route: 065
  4. SENNA S [Concomitant]
     Active Substance: DOCUSATE SODIUM\SENNA LEAF
     Route: 065
  5. FENTANYL. [Concomitant]
     Active Substance: FENTANYL
     Route: 065
  6. DILAUDID [Concomitant]
     Active Substance: HYDROMORPHONE HYDROCHLORIDE
     Route: 065

REACTIONS (1)
  - Streptococcal infection [Unknown]

NARRATIVE: CASE EVENT DATE: 20170908
